FAERS Safety Report 7964633-8 (Version None)
Quarter: 2011Q4

REPORT INFORMATION
  Report Type: 
  Country: None (occurrence: None)
  Receive Date: 20111208
  Receipt Date: 20111128
  Transmission Date: 20120403
  Serious: Yes (Hospitalization, Other)
  Sender: FDA-Public Use
  Company Number: US-BAYER-2011-005979

PATIENT
  Age: 15 Year
  Sex: Female
  Weight: 58.957 kg

DRUGS (9)
  1. YAZ [Suspect]
     Indication: ORAL CONTRACEPTION
     Dosage: UNK
     Dates: start: 20070301, end: 20070901
  2. MINOCYCLINE HYDROCHLORIDE [Concomitant]
     Indication: ACNE
     Dosage: UNK
     Dates: start: 20080717
  3. YAZ [Suspect]
     Indication: PREMENSTRUAL SYNDROME
  4. YASMIN [Suspect]
     Indication: ORAL CONTRACEPTION
     Dosage: UNK
     Dates: start: 20071001, end: 20071201
  5. YASMIN [Suspect]
     Indication: ACNE
  6. YASMIN [Suspect]
     Indication: PREMENSTRUAL SYNDROME
  7. ORTHO CYCLEN-28 [Concomitant]
  8. YAZ [Suspect]
     Indication: ACNE
     Dosage: UNK
     Dates: start: 20080101, end: 20090501
  9. MINOCYCLINE HCL [Concomitant]
     Indication: ACNE

REACTIONS (8)
  - APPENDICECTOMY [None]
  - CHOLECYSTITIS CHRONIC [None]
  - ACNE [None]
  - GALLBLADDER INJURY [None]
  - PAIN [None]
  - EMOTIONAL DISTRESS [None]
  - ANXIETY [None]
  - APPENDICITIS [None]
